FAERS Safety Report 18149042 (Version 1)
Quarter: 2020Q3

REPORT INFORMATION
  Report Type: Spontaneous
  Country: US (occurrence: US)
  Receive Date: 20200813
  Receipt Date: 20200813
  Transmission Date: 20201103
  Serious: No
  Sender: FDA-Public Use
  Company Number: US-BIOMARINAP-US-2020-131295

PATIENT
  Age: 23 Year
  Sex: Female

DRUGS (1)
  1. PALYNZIQ [Suspect]
     Active Substance: PEGVALIASE-PQPZ
     Indication: PHENYLKETONURIA
     Dosage: 20 MILLIGRAM
     Route: 065

REACTIONS (7)
  - Headache [Unknown]
  - Abdominal pain upper [Unknown]
  - Food poisoning [Unknown]
  - Fatigue [Unknown]
  - Nausea [Unknown]
  - Chills [Unknown]
  - Decreased appetite [Unknown]
